FAERS Safety Report 7055523-6 (Version None)
Quarter: 2010Q4

REPORT INFORMATION
  Report Type: 
  Country: None (occurrence: None)
  Receive Date: 20101019
  Receipt Date: 20101019
  Transmission Date: 20110411
  Serious: Yes (Death)
  Sender: FDA-Public Use
  Company Number: None

PATIENT
  Age: 54 Year
  Sex: Male
  Weight: 54.4316 kg

DRUGS (1)
  1. FENTANYL [Suspect]
     Indication: ANALGESIC THERAPY
     Dosage: 1 72 HOURS TRANSDERMAL (3 DOSES TOTAL)
     Route: 062
     Dates: start: 20100827, end: 20100903

REACTIONS (4)
  - APHAGIA [None]
  - MALAISE [None]
  - MOBILITY DECREASED [None]
  - PRODUCT QUALITY ISSUE [None]
